FAERS Safety Report 21300018 (Version 4)
Quarter: 2024Q1

REPORT INFORMATION
  Report Type: Spontaneous
  Country: CA (occurrence: CA)
  Receive Date: 20220906
  Receipt Date: 20240205
  Transmission Date: 20240410
  Serious: Yes (Other)
  Sender: FDA-Public Use
  Company Number: CA-SA-2022SA236820

PATIENT
  Age: 23 Year
  Sex: Female

DRUGS (35)
  1. METRONIDAZOLE [Suspect]
     Active Substance: METRONIDAZOLE
     Indication: Tooth infection
     Dosage: NOT SPECIFIED
     Route: 065
  2. METRONIDAZOLE [Suspect]
     Active Substance: METRONIDAZOLE
     Indication: Pericoronitis
  3. METRONIDAZOLE [Suspect]
     Active Substance: METRONIDAZOLE
     Indication: Febrile neutropenia
  4. MAGNESIUM [Suspect]
     Active Substance: MAGNESIUM
     Indication: Nervous system disorder prophylaxis
     Route: 042
  5. MAGNESIUM [Suspect]
     Active Substance: MAGNESIUM
     Dosage: LIQUID ORAL;MAGNESIUM CHLORIDE SOLUTION
     Route: 042
  6. MAGNESIUM [Suspect]
     Active Substance: MAGNESIUM
     Dosage: MAGNESIUM ASPARTATE
     Route: 042
  7. DAUNORUBICIN [Suspect]
     Active Substance: DAUNORUBICIN
     Indication: Acute myeloid leukaemia
     Dosage: STARTING AT 14 WEEKS AND 6 DAYS. DAUNORUBICIN HYDROCHLORIDE
     Route: 065
  8. DAUNORUBICIN [Suspect]
     Active Substance: DAUNORUBICIN
     Dosage: DAUNORUBICIN
     Route: 065
  9. MEROPENEM [Suspect]
     Active Substance: MEROPENEM
     Indication: Pericoronitis
     Route: 042
  10. MEROPENEM [Suspect]
     Active Substance: MEROPENEM
     Indication: Febrile neutropenia
     Route: 065
  11. MEROPENEM [Suspect]
     Active Substance: MEROPENEM
     Indication: Tooth infection
  12. CEFUROXIME [Suspect]
     Active Substance: CEFUROXIME
     Indication: Pericoronitis
     Dosage: NOT SPECIFIED
     Route: 065
  13. CEFUROXIME [Suspect]
     Active Substance: CEFUROXIME
     Indication: Febrile neutropenia
  14. CEFUROXIME [Suspect]
     Active Substance: CEFUROXIME
     Indication: Tooth infection
  15. BETAMETHASONE [Suspect]
     Active Substance: BETAMETHASONE\BETAMETHASONE DIPROPIONATE
     Indication: Maternal therapy to enhance foetal lung maturity
     Route: 030
  16. BETAMETHASONE [Suspect]
     Active Substance: BETAMETHASONE\BETAMETHASONE DIPROPIONATE
     Route: 064
  17. BETAMETHASONE [Suspect]
     Active Substance: BETAMETHASONE\BETAMETHASONE DIPROPIONATE
     Route: 030
  18. CYTARABINE [Suspect]
     Active Substance: CYTARABINE
     Indication: Acute myeloid leukaemia
     Route: 042
  19. CYTARABINE [Suspect]
     Active Substance: CYTARABINE
     Route: 037
  20. CYTARABINE [Suspect]
     Active Substance: CYTARABINE
     Route: 042
  21. CYTARABINE [Suspect]
     Active Substance: CYTARABINE
     Route: 042
  22. CYTARABINE [Suspect]
     Active Substance: CYTARABINE
     Route: 037
  23. CYTARABINE [Suspect]
     Active Substance: CYTARABINE
     Route: 037
  24. AMPHOTERICIN B [Suspect]
     Active Substance: AMPHOTERICIN B
     Indication: Antifungal prophylaxis
     Route: 065
  25. AMPHOTERICIN B [Suspect]
     Active Substance: AMPHOTERICIN B
     Indication: Prophylaxis
     Route: 065
  26. AMPHOTERICIN B [Suspect]
     Active Substance: AMPHOTERICIN B
     Indication: Febrile neutropenia
  27. DINOPROSTONE [Suspect]
     Active Substance: DINOPROSTONE
     Indication: Induction of cervix ripening
     Dosage: TWO DOSES OF INTRAVAGINAL DINOPROSTONE INSERT OVER 48 HOURS
     Route: 067
  28. DINOPROSTONE [Suspect]
     Active Substance: DINOPROSTONE
     Dosage: TWO DOSES OF INTRAVAGINAL DINOPROSTONE GEL
     Route: 065
  29. OXYTOCIN [Suspect]
     Active Substance: OXYTOCIN
     Indication: Labour induction
     Route: 042
  30. OXYTOCIN [Suspect]
     Active Substance: OXYTOCIN
     Route: 065
  31. IRON [Suspect]
     Active Substance: IRON
     Indication: Mineral supplementation
     Route: 065
  32. VITAMINS NOS [Suspect]
     Active Substance: VITAMINS
     Indication: Vitamin supplementation
     Route: 065
  33. DAUNORUBICIN [Suspect]
     Active Substance: DAUNORUBICIN
     Indication: Acute myeloid leukaemia
     Dosage: POWDER FOR SOLUTION INTRAVENOUS
     Route: 042
  34. BIOTIN;MAGNESIUM;NICOTINAMIDE;PANTOTHENIC ACID;PYRIDOXINE [Concomitant]
     Indication: Product used for unknown indication
     Route: 065
  35. MINERALS\VITAMINS [Concomitant]
     Active Substance: MINERALS\VITAMINS
     Indication: Product used for unknown indication
     Route: 065

REACTIONS (9)
  - Febrile neutropenia [Unknown]
  - Pericoronitis [Unknown]
  - Tooth infection [Unknown]
  - Delivery [Unknown]
  - Premature delivery [Unknown]
  - Maternal exposure during pregnancy [Unknown]
  - Exposure during pregnancy [Unknown]
  - Product use in unapproved indication [Unknown]
  - Off label use [Unknown]
